FAERS Safety Report 5302159-0 (Version None)
Quarter: 2007Q2

REPORT INFORMATION
  Report Type: 
  Country: None (occurrence: None)
  Receive Date: 20070413
  Receipt Date: 20070328
  Transmission Date: 20071010
  Serious: Yes (Hospitalization, Other)
  Sender: FDA-Public Use
  Company Number: 8022848

PATIENT
  Age: 14 Year
  Sex: Female
  Weight: 50 kg

DRUGS (2)
  1. KEPPRA [Suspect]
     Dosage: 30 DF ONCE PO
     Route: 048
     Dates: start: 20070316, end: 20070316
  2. TOPIRAMATE [Suspect]
     Dosage: 30 DF ONCE PO
     Route: 048
     Dates: start: 20070316, end: 20070316

REACTIONS (3)
  - FATIGUE [None]
  - INCORRECT DOSE ADMINISTERED [None]
  - SUICIDE ATTEMPT [None]
